FAERS Safety Report 5753251-8 (Version None)
Quarter: 2008Q2

REPORT INFORMATION
  Report Type: 
  Country: None (occurrence: None)
  Receive Date: 20080530
  Receipt Date: 20070625
  Transmission Date: 20081010
  Serious: No
  Sender: FDA-Public Use
  Company Number: A0659989A

PATIENT
  Age: 70 Year
  Sex: Female

DRUGS (3)
  1. VENTOLIN [Suspect]
     Dosage: 4PUFF AS REQUIRED
     Route: 055
     Dates: start: 20061201
  2. BLOOD PRESSURE MEDICATION [Concomitant]
  3. ARTHRITIS MEDICATION [Concomitant]

REACTIONS (2)
  - DRUG INEFFECTIVE [None]
  - PHARMACEUTICAL PRODUCT COMPLAINT [None]
